FAERS Safety Report 22350244 (Version 3)
Quarter: 2024Q2

REPORT INFORMATION
  Report Type: Report from Study
  Country: CO (occurrence: CO)
  Receive Date: 20230522
  Receipt Date: 20240417
  Transmission Date: 20240715
  Serious: Yes (Disabling)
  Sender: FDA-Public Use
  Company Number: CO-002147023-NVSC2023CO114834

PATIENT
  Sex: Female
  Weight: 72 kg

DRUGS (1)
  1. COSENTYX [Suspect]
     Active Substance: SECUKINUMAB
     Indication: Psoriasis
     Dosage: 300 MG, QMO
     Route: 058
     Dates: start: 20180601

REACTIONS (6)
  - Arthropathy [Unknown]
  - Pain [Unknown]
  - Psoriasis [Unknown]
  - Urticaria [Unknown]
  - Hypersensitivity [Unknown]
  - Injection site pain [Unknown]
